FAERS Safety Report 24162276 (Version 2)
Quarter: 2024Q3

REPORT INFORMATION
  Report Type: Spontaneous
  Country: BE (occurrence: BE)
  Receive Date: 20240801
  Receipt Date: 20240826
  Transmission Date: 20241017
  Serious: Yes (Life-Threatening, Hospitalization, Other)
  Sender: PFIZER
  Company Number: BE-PFIZER INC-PV202400098559

PATIENT
  Age: 32 Year
  Sex: Female

DRUGS (3)
  1. SOLU-MEDROL [Suspect]
     Active Substance: METHYLPREDNISOLONE SODIUM SUCCINATE
     Indication: Transplant rejection
     Dosage: 1000 MG, DAILY FOR THREE CONSECUTIVE DAYS; 2 ROUNDS
     Route: 042
  2. MEDROL [Suspect]
     Active Substance: METHYLPREDNISOLONE
     Indication: Transplant rejection
     Dosage: 8 MG, DAILY
     Route: 048
  3. GRAFALON [Suspect]
     Active Substance: LAPINE T-LYMPHOCYTE IMMUNE GLOBULIN
     Indication: Transplant rejection
     Dosage: 3 MG/KG, 1X/DAY

REACTIONS (1)
  - Drug ineffective [Recovering/Resolving]
